FAERS Safety Report 24627876 (Version 2)
Quarter: 2025Q1

REPORT INFORMATION
  Report Type: Spontaneous
  Country: CA (occurrence: CA)
  Receive Date: 20241117
  Receipt Date: 20250210
  Transmission Date: 20250409
  Serious: Yes (Life-Threatening, Hospitalization, Other)
  Sender: ALEXION PHARMACEUTICALS
  Company Number: CA-ASTRAZENECA-202411CAN004106CA

PATIENT

DRUGS (1)
  1. TAGRISSO [Suspect]
     Active Substance: OSIMERTINIB
     Indication: Lung carcinoma cell type unspecified stage IV

REACTIONS (10)
  - Coma [Unknown]
  - General physical health deterioration [Unknown]
  - Muscle strength abnormal [Unknown]
  - Asthenia [Unknown]
  - Fatigue [Unknown]
  - Disease progression [Unknown]
  - Dizziness [Unknown]
  - Memory impairment [Unknown]
  - Dyspnoea [Unknown]
  - Decreased appetite [Unknown]
